FAERS Safety Report 6366177-6 (Version None)
Quarter: 2009Q3

REPORT INFORMATION
  Report Type: 
  Country: None (occurrence: None)
  Receive Date: 20090921
  Receipt Date: 20090911
  Transmission Date: 20100115
  Serious: Yes (Hospitalization)
  Sender: FDA-Public Use
  Company Number: US-BIOGENIDEC-2009BI029537

PATIENT
  Age: 59 Year
  Sex: Female
  Weight: 97 kg

DRUGS (2)
  1. AVONEX [Suspect]
     Indication: MULTIPLE SCLEROSIS
     Route: 030
     Dates: start: 19960101
  2. AVONEX [Suspect]
     Route: 030
     Dates: start: 20041201

REACTIONS (3)
  - DYSSTASIA [None]
  - RASH [None]
  - URINARY INCONTINENCE [None]
